FAERS Safety Report 13355445 (Version 1)
Quarter: 2017Q1

REPORT INFORMATION
  Report Type: Spontaneous
  Country: FR (occurrence: FR)
  Receive Date: 20170321
  Receipt Date: 20170321
  Transmission Date: 20170429
  Serious: Yes (Hospitalization)
  Sender: FDA-Public Use
  Company Number: FR-PFIZER INC-2017112357

PATIENT
  Age: 42 Year
  Sex: Male
  Weight: 70 kg

DRUGS (4)
  1. DOCETAXEL HOSPIRA [Suspect]
     Active Substance: DOCETAXEL
     Indication: TONSIL CANCER
     Dosage: 136 MG, CYCLIC
     Route: 041
     Dates: start: 20160106
  2. CISPLATINE ACCORD [Suspect]
     Active Substance: CISPLATIN
     Indication: TONSIL CANCER
     Dosage: 36 MG, 2X/DAY, CYCLIC
     Route: 041
     Dates: start: 20160104, end: 20160107
  3. NEULASTA [Concomitant]
     Active Substance: PEGFILGRASTIM
     Dosage: 6 MG, SINGLE AT DAY 4
     Route: 058
     Dates: start: 20160107
  4. FLUOROURACILE ACCORD [Suspect]
     Active Substance: FLUOROURACIL
     Indication: TONSIL CANCER
     Dosage: 1350 MG OVER 46 HOURS, ON DAY 1  AND DAY 3
     Route: 041
     Dates: start: 20160104, end: 20160106

REACTIONS (1)
  - Mixed liver injury [Not Recovered/Not Resolved]

NARRATIVE: CASE EVENT DATE: 20160108
